FAERS Safety Report 4273224-4 (Version None)
Quarter: 2004Q1

REPORT INFORMATION
  Report Type: 
  Country: None (occurrence: None)
  Receive Date: 20040116
  Receipt Date: 20031113
  Transmission Date: 20041129
  Serious: Yes (Other)
  Sender: FDA-Public Use
  Company Number: BR-ROCHE-351858

PATIENT
  Age: 43 Year
  Sex: Male
  Weight: 67 kg

DRUGS (2)
  1. RIVOTRIL [Suspect]
     Indication: PANIC DISORDER
     Route: 048
     Dates: start: 20030315, end: 20030315
  2. FLUOXETINE [Concomitant]
     Indication: PANIC DISORDER
     Route: 048
     Dates: start: 20030315

REACTIONS (8)
  - AMNESIA [None]
  - BURNING SENSATION [None]
  - ERECTILE DYSFUNCTION [None]
  - INSOMNIA [None]
  - NERVOUS SYSTEM DISORDER [None]
  - SKIN BURNING SENSATION [None]
  - SUICIDAL IDEATION [None]
  - TINNITUS [None]
